FAERS Safety Report 8346815-9 (Version None)
Quarter: 2012Q2

REPORT INFORMATION
  Report Type: 
  Country: None (occurrence: None)
  Receive Date: 20120509
  Receipt Date: 20120504
  Transmission Date: 20120825
  Serious: Yes (Death, Other)
  Sender: FDA-Public Use
  Company Number: US-SANOFI-AVENTIS-2012SA031767

PATIENT
  Age: 9 Year
  Sex: Female

DRUGS (1)
  1. TAXOTERE [Suspect]
     Dosage: DOSE- 60 MG/M2 X 3 DOSES
     Route: 042

REACTIONS (3)
  - HYPOTENSION [None]
  - SHOCK [None]
  - PNEUMONIA FUNGAL [None]
